FAERS Safety Report 6810416-1 (Version None)
Quarter: 2010Q2

REPORT INFORMATION
  Report Type: 
  Country: None (occurrence: None)
  Receive Date: 20100630
  Receipt Date: 20100628
  Transmission Date: 20101027
  Serious: Yes (Death)
  Sender: FDA-Public Use
  Company Number: US-JNJFOC-20100208166

PATIENT
  Sex: Male
  Weight: 104.33 kg

DRUGS (5)
  1. INVEGA SUSTENNA [Suspect]
     Indication: SCHIZOAFFECTIVE DISORDER
     Dosage: TAKEN 2 TO 3 MONTHS
     Route: 030
  2. INVEGA SUSTENNA [Suspect]
     Indication: SCHIZOPHRENIA
     Dosage: TAKEN 2 TO 3 MONTHS
     Route: 030
  3. WELLBUTRIN XL [Concomitant]
     Indication: DEPRESSION
  4. WELLBUTRIN XL [Concomitant]
     Dosage: 150 MG + 300 MG FOR THE PAST YEAR.
  5. TRAZODONE HYDROCHLORIDE [Concomitant]
     Indication: INSOMNIA

REACTIONS (1)
  - COMPLETED SUICIDE [None]
